FAERS Safety Report 9803186 (Version 1)
Quarter: 2014Q1

REPORT INFORMATION
  Report Type: Spontaneous
  Country: US (occurrence: None)
  Receive Date: 20140107
  Receipt Date: 20140107
  Transmission Date: 20141002
  Serious: No
  Sender: FDA-Public Use
  Company Number: None

PATIENT
  Age: 70 Year
  Sex: Male

DRUGS (1)
  1. TICE BCG [Suspect]
     Indication: BLADDER IRRIGATION
     Route: 043
     Dates: start: 20141121, end: 20141204

REACTIONS (4)
  - Atrial fibrillation [None]
  - Blood urine present [None]
  - Brain hypoxia [None]
  - Hypoxia [None]
